FAERS Safety Report 19493687 (Version 1)
Quarter: 2021Q3

REPORT INFORMATION
  Report Type: Spontaneous
  Country: GB (occurrence: GB)
  Receive Date: 20210705
  Receipt Date: 20210705
  Transmission Date: 20211014
  Serious: Yes (Disabling, Other)
  Sender: FDA-Public Use
  Company Number: GB-SA-2021SA210223

PATIENT
  Age: 23 Year
  Sex: Female
  Weight: 64 kg

DRUGS (4)
  1. NORIDAY [NORETHISTERONE] [Concomitant]
     Indication: ILL-DEFINED DISORDER
     Dosage: UNK
  2. FEXOFENADINE HYDROCHLORIDE. [Suspect]
     Active Substance: FEXOFENADINE HYDROCHLORIDE
     Indication: SEASONAL ALLERGY
     Dosage: 120 MG
     Route: 048
     Dates: start: 20210611, end: 20210616
  3. SALBUTAMOL [Concomitant]
     Active Substance: ALBUTEROL
     Indication: ILL-DEFINED DISORDER
     Dosage: UNK
  4. FOSTAIR [Concomitant]
     Active Substance: BECLOMETHASONE\FORMOTEROL
     Indication: ILL-DEFINED DISORDER
     Dosage: UNK

REACTIONS (2)
  - Anxiety [Not Recovered/Not Resolved]
  - Depression suicidal [Recovering/Resolving]

NARRATIVE: CASE EVENT DATE: 20210614
